FAERS Safety Report 5443503-3 (Version None)
Quarter: 2007Q3

REPORT INFORMATION
  Report Type: 
  Country: None (occurrence: None)
  Receive Date: 20070905
  Receipt Date: 20070825
  Transmission Date: 20080115
  Serious: Yes (Hospitalization)
  Sender: FDA-Public Use
  Company Number: US-ELI_LILLY_AND_COMPANY-US200708006235

PATIENT
  Age: 73 Year
  Sex: Male

DRUGS (12)
  1. BYETTA [Suspect]
     Indication: TYPE 2 DIABETES MELLITUS
     Dosage: 5 UG, 2/D
     Route: 058
     Dates: start: 20070101, end: 20070201
  2. BYETTA [Suspect]
     Dosage: 10 UG, 2/D
     Route: 058
     Dates: start: 20070201
  3. LISINOPRIL [Concomitant]
     Indication: BLOOD PRESSURE
  4. LOPRESSOR [Concomitant]
     Indication: BLOOD PRESSURE
  5. LORAZEPAM [Concomitant]
     Indication: ANXIETY
  6. GLYBURIDE [Concomitant]
     Indication: DIABETES MELLITUS
  7. METFORMIN HCL [Concomitant]
     Indication: DIABETES MELLITUS
  8. LASIX [Concomitant]
     Indication: FLUID RETENTION
  9. ASPIRIN [Concomitant]
  10. MAGNESIUM SULFATE [Concomitant]
  11. TYLENOL /USA/ [Concomitant]
  12. LIPITOR [Concomitant]

REACTIONS (4)
  - ANXIETY [None]
  - BLOOD GLUCOSE DECREASED [None]
  - BLOOD PRESSURE SYSTOLIC INCREASED [None]
  - DIZZINESS [None]
